FAERS Safety Report 13396058 (Version 1)
Quarter: 2017Q2

REPORT INFORMATION
  Report Type: Spontaneous
  Country: US (occurrence: US)
  Receive Date: 20170403
  Receipt Date: 20170403
  Transmission Date: 20170830
  Serious: No
  Sender: FDA-Public Use
  Company Number: None

PATIENT
  Age: 15 Month
  Sex: Male
  Weight: 9 kg

DRUGS (1)
  1. AMOXICILLIN 400 MG PER 5 ML [Suspect]
     Active Substance: AMOXICILLIN
     Indication: OTITIS MEDIA
     Route: 048
     Dates: start: 20170320, end: 20170327

REACTIONS (1)
  - Urticaria [None]

NARRATIVE: CASE EVENT DATE: 20170401
